FAERS Safety Report 21548138 (Version 1)
Quarter: 2022Q4

REPORT INFORMATION
  Report Type: Spontaneous
  Country: US (occurrence: None)
  Receive Date: 20221102
  Receipt Date: 20221102
  Transmission Date: 20230112
  Serious: No
  Sender: FDA-Public Use
  Company Number: None

PATIENT
  Age: 52 Year
  Sex: Female

DRUGS (1)
  1. TALTZ [Suspect]
     Active Substance: IXEKIZUMAB
     Dosage: 80MG EVERY 4 WEEKS SUBCUTANEOUS
     Route: 058

REACTIONS (2)
  - Device malfunction [None]
  - Product dose omission issue [None]

NARRATIVE: CASE EVENT DATE: 20221031
